FAERS Safety Report 16578876 (Version 1)
Quarter: 2019Q3

REPORT INFORMATION
  Report Type: Spontaneous
  Country: CN (occurrence: CN)
  Receive Date: 20190716
  Receipt Date: 20190716
  Transmission Date: 20191004
  Serious: Yes (Hospitalization)
  Sender: FDA-Public Use
  Company Number: CN-JNJFOC-20190713622

PATIENT
  Age: 5 Day
  Sex: Male
  Weight: 1.19 kg

DRUGS (9)
  1. MOTRIN INFANTS [Suspect]
     Active Substance: IBUPROFEN
     Dosage: 5MG/KG DAILY, AT 22:00
     Route: 048
     Dates: start: 20190626
  2. TAZOBACTAM [Suspect]
     Active Substance: TAZOBACTAM
     Indication: INFECTION PROPHYLAXIS
     Route: 065
  3. DOPAMINE [Suspect]
     Active Substance: DOPAMINE HYDROCHLORIDE
     Indication: CARDIOVASCULAR DISORDER
     Route: 065
  4. VITAMIN K1 [Suspect]
     Active Substance: PHYTONADIONE
     Indication: HAEMORRHAGE PROPHYLAXIS
     Route: 065
  5. MOTRIN INFANTS [Suspect]
     Active Substance: IBUPROFEN
     Indication: PATENT DUCTUS ARTERIOSUS
     Dosage: 10MG/KG DAILY
     Route: 048
  6. PHOSPHOLIPIDS [Suspect]
     Active Substance: OMEGA-3 FATTY ACIDS
     Indication: MATERNAL THERAPY TO ENHANCE FOETAL LUNG MATURITY
     Route: 065
  7. MOTRIN INFANTS [Suspect]
     Active Substance: IBUPROFEN
     Route: 048
     Dates: start: 20190625, end: 20190626
  8. MIDAZOLAM [Suspect]
     Active Substance: MIDAZOLAM HYDROCHLORIDE
     Indication: SEDATION
     Route: 065
  9. PIPERACILLIN. [Suspect]
     Active Substance: PIPERACILLIN SODIUM
     Indication: INFECTION PROPHYLAXIS
     Route: 065

REACTIONS (3)
  - Gastric haemorrhage [Recovering/Resolving]
  - Off label use [Unknown]
  - Product use in unapproved indication [Unknown]

NARRATIVE: CASE EVENT DATE: 20190626
